FAERS Safety Report 8536040-0 (Version None)
Quarter: 2012Q3

REPORT INFORMATION
  Report Type: 
  Country: None (occurrence: None)
  Receive Date: 20120718
  Receipt Date: 20120718
  Transmission Date: 20120928
  Serious: No
  Sender: FDA-Public Use
  Company Number: None

PATIENT
  Sex: Female

DRUGS (1)
  1. TYSABRI [Suspect]
     Dosage: 300 MG/15ML IV
     Route: 042

REACTIONS (1)
  - CONTUSION [None]
